FAERS Safety Report 6659874-6 (Version None)
Quarter: 2010Q1

REPORT INFORMATION
  Report Type: 
  Country: None (occurrence: None)
  Receive Date: 20100330
  Receipt Date: 20100330
  Transmission Date: 20100710
  Serious: Yes (Hospitalization)
  Sender: FDA-Public Use
  Company Number: None

PATIENT
  Sex: Male
  Weight: 109 kg

DRUGS (4)
  1. SUNITINIB MALATE [Suspect]
     Indication: RENAL CANCER METASTATIC
     Dosage: 50 MG  ORAL DAILY
     Route: 048
     Dates: start: 20100226
  2. LOTENSIN [Concomitant]
  3. COMPAZINE [Concomitant]
  4. NORVASC [Concomitant]

REACTIONS (2)
  - CALCULUS BLADDER [None]
  - NEPHROLITHIASIS [None]
